FAERS Safety Report 4276721-0 (Version None)
Quarter: 2004Q1

REPORT INFORMATION
  Report Type: 
  Country: None (occurrence: None)
  Receive Date: 20040120
  Receipt Date: 20040108
  Transmission Date: 20041129
  Serious: Yes (Life-Threatening, Hospitalization)
  Sender: FDA-Public Use
  Company Number: FR-JNJFOC-20040101932

PATIENT
  Age: 47 Year
  Sex: Female

DRUGS (6)
  1. HALDOL [Suspect]
     Dosage: 7 MG, IN 1 DAY, ORAL
     Route: 048
     Dates: end: 20010425
  2. SABRIL (VIGABATRIN) [Suspect]
     Indication: EPILEPSY
     Dosage: 500 MG, IN 1 DAY, ORAL
     Route: 048
     Dates: end: 20010425
  3. LAMICTAL [Suspect]
     Indication: EPILEPSY
     Dosage: 150 MG, IN 1 DAY, ORAL
     Route: 048
     Dates: start: 20010313, end: 20010425
  4. OMEPRAZOLE [Suspect]
     Dosage: 20 MG, IN 1 DAY, ORAL
     Route: 048
     Dates: end: 20010425
  5. GARDENAL (PHENOBARBITAL) TABLETS [Suspect]
     Indication: EPILEPSY
     Dosage: 10 MG, IN 1 DAY, ORAL
     Route: 048
     Dates: end: 20010425
  6. OXAZEPAM [Suspect]
     Dosage: 10 MG, IN 1 DAY, ORAL
     Route: 048
     Dates: end: 20010425

REACTIONS (10)
  - ACTIVATED PARTIAL THROMBOPLASTIN TIME [None]
  - CHOLESTASIS [None]
  - DRUG INEFFECTIVE [None]
  - DRUG INTERACTION [None]
  - GENERAL PHYSICAL HEALTH DETERIORATION [None]
  - HYPERTHERMIA [None]
  - INTERNATIONAL NORMALISED RATIO INCREASED [None]
  - MOUTH HAEMORRHAGE [None]
  - PROTHROMBIN LEVEL ABNORMAL [None]
  - SOMNOLENCE [None]
